FAERS Safety Report 25441195 (Version 2)
Quarter: 2025Q4

REPORT INFORMATION
  Report Type: Spontaneous
  Country: US (occurrence: None)
  Receive Date: 20250616
  Receipt Date: 20251215
  Transmission Date: 20260117
  Serious: No
  Sender: UCB
  Company Number: US-UCBSA-2025014530

PATIENT
  Age: 47 Year
  Weight: 113.38 kg

DRUGS (1)
  1. BIMZELX [Suspect]
     Active Substance: BIMEKIZUMAB-BKZX
     Indication: Hidradenitis
     Dosage: 320 MILLIGRAM, EV 2 WEEKS(QOW)

REACTIONS (13)
  - Injection site reaction [Unknown]
  - Injection site swelling [Unknown]
  - Injection site bruising [Unknown]
  - Injection site pain [Unknown]
  - Injection site haemorrhage [Unknown]
  - Hidradenitis [Unknown]
  - Condition aggravated [Unknown]
  - Memory impairment [Unknown]
  - Pain [Unknown]
  - Pharyngeal swelling [Unknown]
  - Cough [Unknown]
  - Product dose omission issue [Unknown]
  - Therapy interrupted [Unknown]
